FAERS Safety Report 17651880 (Version 1)
Quarter: 2020Q2

REPORT INFORMATION
  Report Type: Spontaneous
  Country: GB (occurrence: GB)
  Receive Date: 20200409
  Receipt Date: 20200409
  Transmission Date: 20200713
  Serious: Yes (Life-Threatening)
  Sender: FDA-Public Use
  Company Number: GB-BAYER-2020-015487

PATIENT
  Age: 88 Year
  Sex: Female
  Weight: 72 kg

DRUGS (4)
  1. CIPROXIN 400/200 MG/ML [Suspect]
     Active Substance: CIPROFLOXACIN
     Dosage: 400 MG, QD
     Route: 051
     Dates: start: 20200108, end: 20200108
  2. TEICOPLANIN [Suspect]
     Active Substance: TEICOPLANIN
     Indication: ANTIBIOTIC PROPHYLAXIS
     Dosage: 800 MG
     Route: 051
     Dates: start: 20200108, end: 20200108
  3. FUROSEMIDE. [Concomitant]
     Active Substance: FUROSEMIDE
     Dosage: UNK
  4. BISOPROLOL [Concomitant]
     Active Substance: BISOPROLOL
     Dosage: UNK

REACTIONS (1)
  - Hypotension [Recovered/Resolved with Sequelae]

NARRATIVE: CASE EVENT DATE: 20200108
